FAERS Safety Report 4954990-9 (Version None)
Quarter: 2006Q1

REPORT INFORMATION
  Report Type: 
  Country: None (occurrence: None)
  Receive Date: 20060322
  Receipt Date: 20060308
  Transmission Date: 20060701
  Serious: Yes (Hospitalization)
  Sender: FDA-Public Use
  Company Number: 2006033931

PATIENT
  Age: 73 Year
  Sex: Male
  Weight: 90.7194 kg

DRUGS (5)
  1. VIAGRA [Suspect]
     Indication: ERECTILE DYSFUNCTION
     Dosage: 50 MG, ORAL
     Route: 048
  2. SINEMET [Concomitant]
  3. COMTAN [Concomitant]
  4. CITALOPRAM [Concomitant]
  5. ALL OTHER THERAPEUTIC PRODUCTS [Concomitant]

REACTIONS (5)
  - DRUG INEFFECTIVE [None]
  - MALAISE [None]
  - MEMORY IMPAIRMENT [None]
  - RENAL SURGERY [None]
  - WEIGHT DECREASED [None]
